FAERS Safety Report 14535554 (Version 8)
Quarter: 2020Q2

REPORT INFORMATION
  Report Type: Spontaneous
  Country: AT (occurrence: AT)
  Receive Date: 20180215
  Receipt Date: 20200506
  Transmission Date: 20200713
  Serious: Yes (Hospitalization)
  Sender: FDA-Public Use
  Company Number: AT-CELGENEUS-AUT-20180202967

PATIENT
  Age: 83 Year
  Sex: Male
  Weight: 73.7 kg

DRUGS (31)
  1. ALLOPURINOL. [Concomitant]
     Active Substance: ALLOPURINOL
     Indication: PROPHYLAXIS
     Route: 048
     Dates: start: 20171209
  2. GLANDOMED [Concomitant]
     Indication: PROPHYLAXIS
     Dosage: 1 SPOON 4 PER DAY
     Route: 048
     Dates: start: 20171129
  3. ZOFRAN [Concomitant]
     Active Substance: ONDANSETRON HYDROCHLORIDE
     Indication: NEUTROPENIA
     Route: 065
     Dates: start: 20180107
  4. VENETOCLAX (VERUM) [Concomitant]
     Dosage: 200 MILLIGRAM
     Route: 048
     Dates: start: 20171212, end: 20171212
  5. VENETOCLAX (VERUM) [Concomitant]
     Dosage: 400 MILLIGRAM
     Route: 048
     Dates: start: 20180220
  6. LACTATED RINGERS SOLUTION [Concomitant]
     Active Substance: CALCIUM CHLORIDE\POTASSIUM CHLORIDE\SODIUM CHLORIDE\SODIUM LACTATE
     Route: 041
     Dates: start: 20180115, end: 20180117
  7. LASIX [Concomitant]
     Active Substance: FUROSEMIDE
     Dosage: 40 MILLIGRAM
     Route: 048
     Dates: start: 20171205, end: 20171207
  8. XANOR [Concomitant]
     Active Substance: ALPRAZOLAM
     Indication: ANXIETY
     Dosage: .5 MILLIGRAM
     Route: 048
     Dates: start: 20171211, end: 20171211
  9. VENETOCLAX (VERUM) [Concomitant]
     Dosage: 400 MILLIGRAM
     Route: 048
     Dates: start: 20171213, end: 20180122
  10. ZARZIO [Concomitant]
     Active Substance: FILGRASTIM
     Dosage: 48MIO/0,5ML
     Route: 058
     Dates: start: 20180130
  11. MEXALEN [Concomitant]
     Active Substance: ACETAMINOPHEN
     Indication: PROPHYLAXIS
     Route: 058
     Dates: start: 20180105
  12. VOLTAREN [Concomitant]
     Active Substance: DICLOFENAC SODIUM
     Indication: THROMBOPHLEBITIS
     Route: 061
     Dates: start: 20180121
  13. AZACITIDINE. [Suspect]
     Active Substance: AZACITIDINE
     Indication: ACUTE MYELOID LEUKAEMIA
     Dosage: 75 MILLIGRAM/SQ. METER
     Route: 058
     Dates: start: 20171211
  14. METOPROLOL TARTRATE. [Concomitant]
     Active Substance: METOPROLOL TARTRATE
     Indication: HYPERTENSION
     Dosage: 47.5 MILLIGRAM
     Route: 048
     Dates: start: 19980722
  15. NICOLAN [Concomitant]
     Indication: CARDIOVASCULAR EVENT PROPHYLAXIS
     Dosage: 20 MILLIGRAM
     Route: 048
     Dates: start: 20150411
  16. DOMINAL (PROTHIPENDYL HYDROCHLORIDE) [Concomitant]
     Active Substance: PROTHIPENDYL HYDROCHLORIDE
     Indication: INSOMNIA
     Dosage: 80 MILLIGRAM
     Route: 048
     Dates: start: 20171127
  17. GUTTALAX [Concomitant]
     Active Substance: SODIUM PICOSULFATE
     Indication: CONSTIPATION
     Route: 048
     Dates: start: 20180110
  18. LACTATED RINGERS SOLUTION [Concomitant]
     Active Substance: CALCIUM CHLORIDE\POTASSIUM CHLORIDE\SODIUM CHLORIDE\SODIUM LACTATE
     Indication: PROPHYLAXIS
     Route: 041
     Dates: start: 20171209, end: 20171217
  19. LACTATED RINGERS SOLUTION [Concomitant]
     Active Substance: CALCIUM CHLORIDE\POTASSIUM CHLORIDE\SODIUM CHLORIDE\SODIUM LACTATE
     Route: 041
     Dates: start: 20171209, end: 20171217
  20. THROMBO ASS [Concomitant]
     Active Substance: ASPIRIN
     Indication: CARDIOVASCULAR EVENT PROPHYLAXIS
     Dosage: 100 MILLIGRAM
     Route: 048
     Dates: start: 19980630, end: 20180112
  21. NOVOMIX [Concomitant]
     Active Substance: INSULIN ASPART
     Indication: DIABETES MELLITUS
     Route: 058
     Dates: start: 20150410
  22. MYCOSTATIN [Concomitant]
     Active Substance: NYSTATIN
     Indication: MUCOSAL INFLAMMATION
     Dosage: 6 MILLILITER
     Route: 048
     Dates: start: 20171208, end: 20180130
  23. ZARZIO [Concomitant]
     Active Substance: FILGRASTIM
     Dosage: 48MIO/0,5ML
     Route: 058
     Dates: start: 20180122, end: 20180125
  24. LAEVOLAC [Concomitant]
     Active Substance: LACTULOSE
     Indication: CONSTIPATION
     Route: 048
     Dates: start: 20180110
  25. LASIX [Concomitant]
     Active Substance: FUROSEMIDE
     Indication: OEDEMA PERIPHERAL
     Dosage: 20 MILLIGRAM
     Route: 048
     Dates: start: 20171201, end: 20171201
  26. LASIX [Concomitant]
     Active Substance: FUROSEMIDE
     Route: 048
     Dates: start: 20171207
  27. LOVENOX [Concomitant]
     Active Substance: ENOXAPARIN SODIUM
     Indication: THROMBOSIS PROPHYLAXIS
     Dosage: 20 MILLIGRAM
     Route: 058
     Dates: start: 20171130, end: 20171201
  28. XANOR [Concomitant]
     Active Substance: ALPRAZOLAM
     Route: 048
     Dates: start: 20171211
  29. ZARZIO [Concomitant]
     Active Substance: FILGRASTIM
     Indication: NEUTROPENIA
     Dosage: 48MIO/0,5ML
     Route: 058
     Dates: start: 20180105, end: 20180113
  30. CLINDAMYCIN. [Concomitant]
     Active Substance: CLINDAMYCIN
     Indication: THROMBOPHLEBITIS
     Dosage: 1800 MILLIGRAM
     Route: 048
     Dates: start: 20180126, end: 20180130
  31. VENETOCLAX (VERUM) [Concomitant]
     Indication: ACUTE MYELOID LEUKAEMIA
     Dosage: 100 MILLIGRAM
     Route: 048
     Dates: start: 20171211, end: 20171211

REACTIONS (2)
  - Epistaxis [Recovered/Resolved]
  - Haematuria [Recovered/Resolved]

NARRATIVE: CASE EVENT DATE: 20180130
